FAERS Safety Report 10930021 (Version 2)
Quarter: 2015Q3

REPORT INFORMATION
  Report Type: Spontaneous
  Country: FR (occurrence: FR)
  Receive Date: 20150319
  Receipt Date: 20150703
  Transmission Date: 20151125
  Serious: Yes (Hospitalization)
  Sender: FDA-Public Use
  Company Number: FR-JNJFOC-20150308656

PATIENT
  Age: 82 Year
  Sex: Female

DRUGS (17)
  1. ALBUMIN [Concomitant]
     Active Substance: ALBUMIN (HUMAN)
  2. LEVOTHYROX [Concomitant]
     Active Substance: LEVOTHYROXINE
  3. OLANZAPINE. [Concomitant]
     Active Substance: OLANZAPINE
  4. DIFFU K [Concomitant]
     Active Substance: POTASSIUM CHLORIDE
  5. TAZOCILLINE [Concomitant]
     Active Substance: PIPERACILLIN SODIUM\TAZOBACTAM SODIUM
  6. IMBRUVICA [Suspect]
     Active Substance: IBRUTINIB
     Indication: CHRONIC LYMPHOCYTIC LEUKAEMIA
     Route: 048
     Dates: start: 20150226, end: 20150306
  7. IPRATROPIUM [Concomitant]
     Active Substance: IPRATROPIUM
     Route: 055
  8. SALBUTAMOL [Concomitant]
     Active Substance: ALBUTEROL
     Route: 055
  9. OFLOXACINE [Concomitant]
     Active Substance: OFLOXACIN
  10. PRIMPERAN [Concomitant]
     Active Substance: METOCLOPRAMIDE HYDROCHLORIDE
  11. FUROSEMIDE. [Concomitant]
     Active Substance: FUROSEMIDE
  12. ZELITREX [Concomitant]
     Active Substance: VALACYCLOVIR HYDROCHLORIDE
  13. LASILIX [Concomitant]
     Active Substance: FUROSEMIDE
  14. IMBRUVICA [Suspect]
     Active Substance: IBRUTINIB
     Indication: CHRONIC LYMPHOCYTIC LEUKAEMIA
     Route: 048
     Dates: start: 20150226, end: 20150306
  15. IMBRUVICA [Suspect]
     Active Substance: IBRUTINIB
     Indication: CHRONIC LYMPHOCYTIC LEUKAEMIA
     Route: 048
     Dates: start: 20150319, end: 20150324
  16. PHOCYTAN [Concomitant]
     Active Substance: .ALPHA.-GLUCOSE-1-PHOSPHATE
  17. IMBRUVICA [Suspect]
     Active Substance: IBRUTINIB
     Indication: CHRONIC LYMPHOCYTIC LEUKAEMIA
     Route: 048
     Dates: start: 20150319, end: 20150324

REACTIONS (5)
  - Incorrect dose administered [Unknown]
  - Petechiae [Recovered/Resolved]
  - Splenic haematoma [Recovered/Resolved]
  - Spontaneous haemorrhage [Recovered/Resolved]
  - Thrombocytopenia [Not Recovered/Not Resolved]

NARRATIVE: CASE EVENT DATE: 20150302
